FAERS Safety Report 10035971 (Version 2)
Quarter: 2014Q3

REPORT INFORMATION
  Report Type: Spontaneous
  Country: FR (occurrence: FR)
  Receive Date: 20140325
  Receipt Date: 20140807
  Transmission Date: 20150326
  Serious: Yes (Disabling, Other)
  Sender: FDA-Public Use
  Company Number: FR-PFIZER INC-2014080030

PATIENT
  Age: 22 Year
  Sex: Female

DRUGS (2)
  1. MINIDRIL [Suspect]
     Active Substance: ETHINYL ESTRADIOL\LEVONORGESTREL
     Dosage: 30MCG/ 150MCG
     Route: 048
     Dates: start: 20130110, end: 20140201
  2. CONTALAX [Concomitant]

REACTIONS (4)
  - Diarrhoea [Not Recovered/Not Resolved]
  - Eating disorder [Unknown]
  - Abdominal rigidity [Not Recovered/Not Resolved]
  - Weight decreased [Not Recovered/Not Resolved]

NARRATIVE: CASE EVENT DATE: 20130131
